FAERS Safety Report 19521584 (Version 3)
Quarter: 2021Q3

REPORT INFORMATION
  Report Type: Other
  Country: IT (occurrence: IT)
  Receive Date: 20210713
  Receipt Date: 20210722
  Transmission Date: 20211014
  Serious: Yes (Death)
  Sender: FDA-Public Use
  Company Number: IT-CELLTRION INC.-2021IT009303

PATIENT

DRUGS (12)
  1. BISOPROLOL FUMARATE. [Concomitant]
     Active Substance: BISOPROLOL FUMARATE
  2. ALENDRONATE SODIUM. [Concomitant]
     Active Substance: ALENDRONATE SODIUM
  3. RANEXA [Concomitant]
     Active Substance: RANOLAZINE
  4. ROSUVASTATIN CALCIUM. [Concomitant]
     Active Substance: ROSUVASTATIN CALCIUM
  5. DIBASE [Concomitant]
     Active Substance: CHOLECALCIFEROL
  6. BACTRIM [Concomitant]
     Active Substance: SULFAMETHOXAZOLE\TRIMETHOPRIM
  7. ROCALTROL [Concomitant]
     Active Substance: CALCITRIOL
  8. LASIX [Concomitant]
     Active Substance: FUROSEMIDE
  9. TRUXIMA [Suspect]
     Active Substance: RITUXIMAB-ABBS
     Indication: MICROSCOPIC POLYANGIITIS
     Dosage: 1000 MG, CYCLIC
     Route: 042
     Dates: start: 20210120, end: 20210203
  10. MEDROL [Suspect]
     Active Substance: METHYLPREDNISOLONE
     Dosage: 24 MG EVERY 1 DAY
     Route: 048
  11. PANTOPRAZOLE [Concomitant]
     Active Substance: PANTOPRAZOLE
  12. SINTROM [Concomitant]
     Active Substance: ACENOCOUMAROL

REACTIONS (4)
  - Cardiac failure [Fatal]
  - Soft tissue infection [Fatal]
  - Pneumonitis [Fatal]
  - Sepsis [Fatal]

NARRATIVE: CASE EVENT DATE: 20210310
